FAERS Safety Report 19564559 (Version 1)
Quarter: 2021Q3

REPORT INFORMATION
  Report Type: Spontaneous
  Country: DE (occurrence: DE)
  Receive Date: 20210714
  Receipt Date: 20210714
  Transmission Date: 20211014
  Serious: Yes (Other)
  Sender: FDA-Public Use
  Company Number: DE-GILEAD-2021-0540451

PATIENT
  Age: 36 Year
  Sex: Male

DRUGS (3)
  1. SUSTIVA [Concomitant]
     Active Substance: EFAVIRENZ
  2. TARDOCILLIN [BENZATHINE BENZYLPENICILLIN] [Concomitant]
  3. TRUVADA [Suspect]
     Active Substance: EMTRICITABINE\TENOFOVIR DISOPROXIL FUMARATE
     Indication: HIV INFECTION
     Dosage: UNK
     Route: 065

REACTIONS (1)
  - Immune reconstitution inflammatory syndrome associated Kaposi^s sarcoma [Unknown]
